FAERS Safety Report 8888036 (Version 1)
Quarter: 2012Q4

REPORT INFORMATION
  Report Type: 
  Country: US (occurrence: None)
  Receive Date: 20121101
  Receipt Date: 20121101
  Transmission Date: 20130627
  Serious: Yes (Hospitalization)
  Sender: FDA-Public Use
  Company Number: None

PATIENT
  Sex: Female
  Weight: 54.3 kg

DRUGS (8)
  1. CARBOPLATIN [Suspect]
     Dates: end: 20121018
  2. PACLITAXEL (TAXOL) [Suspect]
     Dates: end: 20121018
  3. ASPIRIN [Concomitant]
  4. ATIVAN (LORAZEPAM) [Concomitant]
  5. CITALOPRAM [Concomitant]
  6. COMPAZINE [Concomitant]
  7. METOPROLOL [Concomitant]
  8. OXYCODONE [Concomitant]

REACTIONS (4)
  - Palpitations [None]
  - Chest pain [None]
  - Dyspnoea [None]
  - Supraventricular tachycardia [None]
